FAERS Safety Report 16341604 (Version 5)
Quarter: 2020Q3

REPORT INFORMATION
  Report Type: Spontaneous
  Country: US (occurrence: US)
  Receive Date: 20190522
  Receipt Date: 20200915
  Transmission Date: 20201102
  Serious: Yes (Other)
  Sender: FDA-Public Use
  Company Number: US-GILEAD-2019-0409092

PATIENT
  Age: 52 Year
  Sex: Female
  Weight: 114.29 kg

DRUGS (17)
  1. TRUVADA [Suspect]
     Active Substance: EMTRICITABINE\TENOFOVIR DISOPROXIL FUMARATE
     Indication: HIV INFECTION
     Dosage: UNK
     Route: 048
     Dates: start: 20130430, end: 201407
  2. PREDNISOLONE. [Concomitant]
     Active Substance: PREDNISOLONE
  3. RABEPRAZOLE [Concomitant]
     Active Substance: RABEPRAZOLE
  4. COMPLERA [Suspect]
     Active Substance: EMTRICITABINE\RILPIVIRINE HYDROCHLORIDE\TENOFOVIR DISOPROXIL FUMARATE
     Indication: HIV INFECTION
     Dosage: UNK
     Route: 048
     Dates: start: 20140829
  5. PENICILLIN [PENICILLIN NOS] [Concomitant]
     Active Substance: PENICILLIN
  6. ACETAMINOPHEN. [Concomitant]
     Active Substance: ACETAMINOPHEN
  7. FLEET LAXATIVE [Concomitant]
  8. AMOXICILLIN. [Concomitant]
     Active Substance: AMOXICILLIN
  9. RANITIDINE. [Concomitant]
     Active Substance: RANITIDINE
  10. AMPICILLIN [Concomitant]
     Active Substance: AMPICILLIN
  11. ASPIRIN [ACETYLSALICYLIC ACID] [Concomitant]
     Active Substance: ASPIRIN
  12. FERROUS SULFATE. [Concomitant]
     Active Substance: FERROUS SULFATE
  13. ESOMEPRAZOLE. [Concomitant]
     Active Substance: ESOMEPRAZOLE MAGNESIUM
  14. PREZISTA [Concomitant]
     Active Substance: DARUNAVIR ETHANOLATE
  15. OMEPRAZOLE. [Concomitant]
     Active Substance: OMEPRAZOLE
  16. NORVIR [Concomitant]
     Active Substance: RITONAVIR
  17. RETROVIR [Concomitant]
     Active Substance: ZIDOVUDINE

REACTIONS (5)
  - Chronic kidney disease [Not Recovered/Not Resolved]
  - Incontinence [Unknown]
  - Vitamin D deficiency [Not Recovered/Not Resolved]
  - Bone density decreased [Not Recovered/Not Resolved]
  - Malabsorption [Not Recovered/Not Resolved]

NARRATIVE: CASE EVENT DATE: 2013
